FAERS Safety Report 22337508 (Version 2)
Quarter: 2023Q2

REPORT INFORMATION
  Report Type: Report from Study
  Country: US (occurrence: US)
  Receive Date: 20230518
  Receipt Date: 20230621
  Transmission Date: 20230722
  Serious: Yes (Life-Threatening, Hospitalization)
  Sender: FDA-Public Use
  Company Number: US-SEBELA IRELAND LIMITED-2023SEB00026

PATIENT
  Sex: Female
  Weight: 73.696 kg

DRUGS (17)
  1. AZATHIOPRINE [Suspect]
     Active Substance: AZATHIOPRINE
     Indication: Scleroderma
     Dosage: UNK, 1X/DAY
     Route: 048
     Dates: start: 202205, end: 202211
  2. AZATHIOPRINE [Suspect]
     Active Substance: AZATHIOPRINE
     Dosage: UNK, DOUBLED THE DOSE
     Route: 048
     Dates: start: 202211, end: 2023
  3. ALLOPURINOL [Suspect]
     Active Substance: ALLOPURINOL
     Indication: Blood uric acid increased
     Dosage: UNK
  4. ORENITRAM [Suspect]
     Active Substance: TREPROSTINIL
     Indication: Pulmonary hypertension
     Dosage: UNK
     Route: 048
  5. ORENITRAM [Suspect]
     Active Substance: TREPROSTINIL
     Dosage: 2 MG, 3X/DAY
     Route: 048
     Dates: start: 202103
  6. TADALAFIL [Concomitant]
     Active Substance: TADALAFIL
     Dosage: UNK
  7. TORSEMIDE [Concomitant]
     Active Substance: TORSEMIDE
     Dosage: UNK
  8. DIGOXIN [Concomitant]
     Active Substance: DIGOXIN
     Dosage: UNK
  9. LOPRESSOR [Concomitant]
     Active Substance: METOPROLOL TARTRATE
     Dosage: UNK
  10. ELIQUIS [Concomitant]
     Active Substance: APIXABAN
     Dosage: UNK
  11. CYMBALTA [Concomitant]
     Active Substance: DULOXETINE HYDROCHLORIDE
     Dosage: UNK
  12. FLONASE [Concomitant]
     Active Substance: FLUTICASONE PROPIONATE
     Dosage: UNK
  13. XARELTO [Concomitant]
     Active Substance: RIVAROXABAN
     Dosage: UNK
  14. DEXILANT [Concomitant]
     Active Substance: DEXLANSOPRAZOLE
     Dosage: UNK
  15. UNSPECIFIED INGREDIENT [Concomitant]
     Active Substance: UNSPECIFIED INGREDIENT
     Dosage: UNK
  16. JARDIANCE [Concomitant]
     Active Substance: EMPAGLIFLOZIN
     Dosage: UNK
  17. UNSPECIFIED INGREDIENT [Concomitant]
     Active Substance: UNSPECIFIED INGREDIENT

REACTIONS (10)
  - Cardiac failure acute [Recovered/Resolved]
  - Hypokalaemia [Recovered/Resolved]
  - Congestive hepatopathy [Unknown]
  - Hepatic cirrhosis [Unknown]
  - Drug interaction [Recovered/Resolved]
  - Pancytopenia [Recovering/Resolving]
  - Anaemia [Recovering/Resolving]
  - Myelosuppression [Recovering/Resolving]
  - Hypophagia [Unknown]
  - Weight decreased [Unknown]
